FAERS Safety Report 20728530 (Version 2)
Quarter: 2022Q4

REPORT INFORMATION
  Report Type: Report from Study
  Country: US (occurrence: US)
  Receive Date: 20220420
  Receipt Date: 20221010
  Transmission Date: 20230112
  Serious: Yes (Other)
  Sender: FDA-Public Use
  Company Number: US-ABBVIE-22K-163-4362650-00

PATIENT
  Age: 58 Year
  Sex: Male
  Weight: 133.8 kg

DRUGS (4)
  1. SKYRIZI [Suspect]
     Active Substance: RISANKIZUMAB-RZAA
     Indication: Psoriasis
     Route: 058
     Dates: start: 20170106
  2. JANSSEN COVID-19 VACCINE [Concomitant]
     Active Substance: AD26.COV2.S
     Indication: COVID-19 immunisation
     Dosage: ONE IN ONCE FREQUENCY?FIRST DOSE
     Route: 030
     Dates: start: 20210306, end: 20210306
  3. JANSSEN COVID-19 VACCINE [Concomitant]
     Active Substance: AD26.COV2.S
     Indication: COVID-19 immunisation
     Dosage: ONE IN ONCE FREQUENCY? SECOND DOSE
     Route: 030
     Dates: start: 20211112, end: 20211112
  4. JANSSEN COVID-19 VACCINE [Concomitant]
     Active Substance: AD26.COV2.S
     Indication: COVID-19 immunisation
     Dosage: ONE IN ONCE FREQUENCY?BOOSTER DOSE
     Route: 030
     Dates: start: 20211115, end: 20211115

REACTIONS (9)
  - Myocardial infarction [Unknown]
  - Visual impairment [Recovering/Resolving]
  - Erythema [Recovering/Resolving]
  - Sunburn [Unknown]
  - Wound haemorrhage [Unknown]
  - Dry skin [Unknown]
  - Pain in extremity [Unknown]
  - Middle insomnia [Unknown]
  - Burning sensation [Unknown]

NARRATIVE: CASE EVENT DATE: 20170106
